FAERS Safety Report 24320303 (Version 1)
Quarter: 2024Q3

REPORT INFORMATION
  Report Type: Spontaneous
  Country: AE (occurrence: AE)
  Receive Date: 20240914
  Receipt Date: 20240914
  Transmission Date: 20241016
  Serious: Yes (Death, Hospitalization)
  Sender: BAUSCH AND LOMB
  Company Number: AE-BAUSCH-BL-2024-013781

PATIENT
  Age: 55 Year
  Sex: Female

DRUGS (8)
  1. RIFAXIMIN [Suspect]
     Active Substance: RIFAXIMIN
     Indication: Hepatic failure
     Route: 065
  2. RIFAXIMIN [Suspect]
     Active Substance: RIFAXIMIN
     Indication: Liver transplant
  3. FUROSEMIDE [Concomitant]
     Active Substance: FUROSEMIDE
     Indication: Hepatic failure
     Route: 065
  4. FUROSEMIDE [Concomitant]
     Active Substance: FUROSEMIDE
     Indication: Liver transplant
  5. SPIRONOLACTONE [Concomitant]
     Active Substance: SPIRONOLACTONE
     Indication: Hepatic failure
     Route: 065
  6. SPIRONOLACTONE [Concomitant]
     Active Substance: SPIRONOLACTONE
     Indication: Liver transplant
  7. LACTULOSE [Concomitant]
     Active Substance: LACTULOSE
     Indication: Hepatic failure
     Route: 065
  8. LACTULOSE [Concomitant]
     Active Substance: LACTULOSE
     Indication: Liver transplant

REACTIONS (3)
  - SJS-TEN overlap [Fatal]
  - Intentional product use issue [Unknown]
  - Rash erythematous [Unknown]
